FAERS Safety Report 26108120 (Version 1)
Quarter: 2025Q4

REPORT INFORMATION
  Report Type: Spontaneous
  Country: US (occurrence: None)
  Receive Date: 20251129
  Receipt Date: 20251129
  Transmission Date: 20260118
  Serious: Yes (Hospitalization, Disabling)
  Sender: FDA-CTU
  Company Number: None

PATIENT
  Age: 43 Year
  Sex: Female

DRUGS (4)
  1. ZEPBOUND [Suspect]
     Active Substance: TIRZEPATIDE
     Indication: Obesity
  2. Keppra 3000mg daily [Concomitant]
  3. Zonosomide 600 mg daily [Concomitant]
  4. B6 50mg daily [Concomitant]

REACTIONS (1)
  - Epilepsy [None]

NARRATIVE: CASE EVENT DATE: 20250423
